FAERS Safety Report 10059124 (Version 1)
Quarter: 2014Q2

REPORT INFORMATION
  Report Type: Spontaneous
  Country: US (occurrence: US)
  Receive Date: 20140404
  Receipt Date: 20140404
  Transmission Date: 20141212
  Serious: Yes (Other)
  Sender: FDA-Public Use
  Company Number: US-BRISTOL-MYERS SQUIBB COMPANY-20572905

PATIENT
  Age: 62 Year
  Sex: Female
  Weight: 90.7 kg

DRUGS (5)
  1. ABILIFY TABS 5 MG [Suspect]
     Indication: BIPOLAR I DISORDER
     Dates: start: 20140305
  2. PRAVASTATINE [Concomitant]
  3. PREVACID [Concomitant]
  4. ENABLEX [Concomitant]
  5. ACIDOPHILUS [Concomitant]

REACTIONS (3)
  - Bipolar I disorder [Unknown]
  - Wrong technique in drug usage process [Unknown]
  - Weight increased [Unknown]
